FAERS Safety Report 9550113 (Version 5)
Quarter: 2013Q4

REPORT INFORMATION
  Report Type: Spontaneous
  Country: JP (occurrence: JP)
  Receive Date: 20130924
  Receipt Date: 20131127
  Transmission Date: 20140711
  Serious: Yes (Hospitalization)
  Sender: FDA-Public Use
  Company Number: JP-B.I. PHARMACEUTICALS,INC./RIDGEFIELD-2013-BI-29152NB

PATIENT
  Age: 78 Year
  Sex: Male
  Weight: 70 kg

DRUGS (11)
  1. TRAZENTA [Suspect]
     Indication: TYPE 2 DIABETES MELLITUS
     Dosage: 5 MG
     Route: 048
     Dates: start: 20130828, end: 20130910
  2. FEBURIC [Suspect]
     Dosage: 20 MG
     Route: 065
     Dates: start: 20130717
  3. LIPITOR [Concomitant]
     Dosage: 10 MG
     Route: 048
     Dates: start: 20121219
  4. AMARYL [Concomitant]
     Route: 048
     Dates: start: 20121219
  5. NEXIUM [Concomitant]
     Indication: VARICES OESOPHAGEAL
     Dosage: 20 MG
     Route: 048
     Dates: start: 20121219
  6. AMLODIN OD [Concomitant]
     Dosage: 5 MG
     Route: 048
  7. MICARDIS [Concomitant]
     Dosage: 40 MG
     Route: 048
  8. CARDENALIN [Concomitant]
     Route: 065
  9. LASIX [Concomitant]
     Dosage: 20 MG
     Route: 048
  10. FERO-GRADUMET [Concomitant]
     Indication: ANAEMIA
     Route: 065
  11. METGLUCO [Concomitant]
     Dosage: 750 MG
     Route: 048
     Dates: start: 20120718

REACTIONS (5)
  - Platelet count decreased [Not Recovered/Not Resolved]
  - Gastric haemorrhage [Recovered/Resolved]
  - Haematemesis [Unknown]
  - Faeces discoloured [Unknown]
  - Gastric ulcer [Unknown]
